FAERS Safety Report 6583182-5 (Version None)
Quarter: 2010Q1

REPORT INFORMATION
  Report Type: 
  Country: None (occurrence: None)
  Receive Date: 20100125
  Receipt Date: 20091203
  Transmission Date: 20100710
  Serious: Yes (Hospitalization)
  Sender: FDA-Public Use
  Company Number: 2009BI033766

PATIENT
  Age: 48 Year
  Sex: Female

DRUGS (4)
  1. TYSABRI [Suspect]
     Indication: MULTIPLE SCLEROSIS
     Dosage: 300 MG;QM;IV
     Route: 042
     Dates: start: 20080229
  2. CON MEDS [Concomitant]
  3. AVONEX [Concomitant]
  4. COPAXONE [Concomitant]

REACTIONS (6)
  - ANXIETY [None]
  - ASTHENIA [None]
  - EPILEPSY [None]
  - FATIGUE [None]
  - MEMORY IMPAIRMENT [None]
  - MOOD ALTERED [None]
